FAERS Safety Report 23317789 (Version 1)
Quarter: 2023Q4

REPORT INFORMATION
  Report Type: Spontaneous
  Country: US (occurrence: None)
  Receive Date: 20231219
  Receipt Date: 20231219
  Transmission Date: 20240109
  Serious: No
  Sender: FDA-Public Use
  Company Number: US-ROCHE-3374931

PATIENT
  Sex: Female

DRUGS (1)
  1. GAZYVA [Suspect]
     Active Substance: OBINUTUZUMAB
     Indication: Product used for unknown indication
     Dosage: 1000MG/40ML
     Route: 042
     Dates: start: 202306, end: 202306

REACTIONS (3)
  - Dyspnoea [Unknown]
  - Chills [Unknown]
  - Tremor [Unknown]
